FAERS Safety Report 25817490 (Version 2)
Quarter: 2025Q4

REPORT INFORMATION
  Report Type: Spontaneous
  Country: US (occurrence: US)
  Receive Date: 20250918
  Receipt Date: 20251017
  Transmission Date: 20260117
  Serious: Yes (Death, Life-Threatening, Hospitalization)
  Sender: BAUSCH AND LOMB
  Company Number: US-BAUSCH-BH-2025-017585

PATIENT
  Age: 30 Year
  Sex: Female

DRUGS (4)
  1. DEXAMETHASONE [Suspect]
     Active Substance: DEXAMETHASONE
     Indication: Haemophagocytic lymphohistiocytosis
     Route: 042
     Dates: start: 202412, end: 20241228
  2. ETOPOSIDE [Suspect]
     Active Substance: ETOPOSIDE
     Indication: Haemophagocytic lymphohistiocytosis
     Dosage: REDUCED-DOSE ETOPOSIDE; GIVEN INSUFFICIENT RESPONSE AFTER THE SECOND ETOPOSIDE DOSE (16 DECEMBER 202
     Route: 065
     Dates: start: 202412, end: 20241220
  3. VINCRISTINE [Concomitant]
     Active Substance: VINCRISTINE
     Indication: Haemophagocytic lymphohistiocytosis
     Dates: start: 20241219
  4. VINCRISTINE [Concomitant]
     Active Substance: VINCRISTINE
     Indication: Salvage therapy

REACTIONS (11)
  - Shock haemorrhagic [Fatal]
  - Myelosuppression [Unknown]
  - Pneumonia cytomegaloviral [Unknown]
  - Pneumonia parainfluenzae viral [Unknown]
  - Respiratory failure [Unknown]
  - Neutropenia [Unknown]
  - Acute respiratory distress syndrome [Unknown]
  - Pancytopenia [Unknown]
  - Acute myocardial infarction [Unknown]
  - Multiple organ dysfunction syndrome [Unknown]
  - Deep vein thrombosis [Unknown]

NARRATIVE: CASE EVENT DATE: 20241201
